FAERS Safety Report 25750327 (Version 3)
Quarter: 2025Q4

REPORT INFORMATION
  Report Type: Spontaneous
  Country: EU (occurrence: EU)
  Receive Date: 20250902
  Receipt Date: 20251222
  Transmission Date: 20260118
  Serious: Yes (Life-Threatening, Hospitalization, Other)
  Sender: TEVA
  Company Number: None

PATIENT
  Age: 15 Year
  Sex: Male
  Weight: 62 kg

DRUGS (5)
  1. CARBAMAZEPINE [Suspect]
     Active Substance: CARBAMAZEPINE
     Indication: Epilepsy
     Route: 048
     Dates: start: 20250710, end: 20250803
  2. VALPROATE SODIUM [Concomitant]
     Active Substance: VALPROATE SODIUM
     Indication: Epilepsy
     Dosage: LONG-TERM MEDICATION
     Route: 048
  3. DERMATOP [Concomitant]
     Active Substance: PREDNICARBATE
     Indication: Product used for unknown indication
     Dosage: ON PALMS OF THE HANDS AND SOLES OF THE FEET; BASE OINTMENT
  4. MELATONIN [Concomitant]
     Active Substance: MELATONIN
     Indication: Product used for unknown indication
     Dosage: 0-0-0-2 MG
     Route: 048
     Dates: start: 20250708
  5. METHYLPHENIDATE [Concomitant]
     Active Substance: METHYLPHENIDATE
     Indication: Attention deficit hyperactivity disorder
     Dosage: METHYLPHENIDATE RETARD
     Route: 048
     Dates: start: 20250708

REACTIONS (14)
  - Drug reaction with eosinophilia and systemic symptoms [Not Recovered/Not Resolved]
  - Groin pain [Unknown]
  - Increased need for sleep [Unknown]
  - Pyrexia [Not Recovered/Not Resolved]
  - Fatigue [Unknown]
  - Splenomegaly [Unknown]
  - Disseminated intravascular coagulation [Not Recovered/Not Resolved]
  - Urticaria [Not Recovered/Not Resolved]
  - Sluggishness [Unknown]
  - Flushing [Not Recovered/Not Resolved]
  - Nausea [Unknown]
  - Hypotension [Not Recovered/Not Resolved]
  - Hyponatraemia [Not Recovered/Not Resolved]
  - Hypertension [Not Recovered/Not Resolved]

NARRATIVE: CASE EVENT DATE: 20250101
